FAERS Safety Report 5771920-0 (Version None)
Quarter: 2008Q2

REPORT INFORMATION
  Report Type: 
  Country: None (occurrence: None)
  Receive Date: 20080612
  Receipt Date: 20080612
  Transmission Date: 20081010
  Serious: Yes (Life-Threatening, Hospitalization)
  Sender: FDA-Public Use
  Company Number: None

PATIENT
  Age: 58 Year
  Sex: Male
  Weight: 71.3 kg

DRUGS (1)
  1. VANCOMYCIN [Suspect]
     Dosage: 1000 MG BID IV
     Route: 042
     Dates: start: 20080505, end: 20080505

REACTIONS (9)
  - ANAPHYLACTIC REACTION [None]
  - BLOOD PRESSURE IMMEASURABLE [None]
  - BREATH SOUNDS ABSENT [None]
  - CONFUSIONAL STATE [None]
  - HYPERHIDROSIS [None]
  - ILL-DEFINED DISORDER [None]
  - INFUSION RELATED REACTION [None]
  - RESPIRATORY DEPRESSION [None]
  - SYNCOPE [None]
